FAERS Safety Report 8976383 (Version 1)
Quarter: 2012Q4

REPORT INFORMATION
  Report Type: 
  Country: GB (occurrence: GB)
  Receive Date: 20121220
  Receipt Date: 20121220
  Transmission Date: 20130627
  Serious: Yes (Other)
  Sender: FDA-Public Use
  Company Number: GB-MYLANLABS-2012S1025202

PATIENT
  Sex: Female

DRUGS (3)
  1. IRBESARTAN [Suspect]
     Indication: HYPERTENSION
     Dates: start: 20121122, end: 20121128
  2. IRBESARTAN [Suspect]
     Indication: HYPERTENSION
  3. AMLODIPINE [Concomitant]
     Indication: PRODUCT USED FOR UNKNOWN INDICATION
     Dates: start: 20121126

REACTIONS (5)
  - Headache [Recovering/Resolving]
  - Vision blurred [Recovering/Resolving]
  - Balance disorder [Recovering/Resolving]
  - Blood pressure increased [Recovering/Resolving]
  - Product substitution issue [Recovering/Resolving]
